FAERS Safety Report 16048078 (Version 1)
Quarter: 2019Q1

REPORT INFORMATION
  Report Type: Spontaneous
  Country: GB (occurrence: GB)
  Receive Date: 20190307
  Receipt Date: 20190307
  Transmission Date: 20190418
  Serious: Yes (Congenital Anomaly)
  Sender: FDA-Public Use
  Company Number: GB-PERRIGO-19GB002816

PATIENT
  Sex: Male
  Weight: 2.64 kg

DRUGS (10)
  1. RANITIDINE HYDROCHLORIDE. [Suspect]
     Active Substance: RANITIDINE HYDROCHLORIDE
     Indication: FOETAL EXPOSURE DURING PREGNANCY
     Dosage: 300 MG, QD
     Route: 064
     Dates: start: 20181215, end: 20181223
  2. INSULIN ASPART [Suspect]
     Active Substance: INSULIN ASPART
     Indication: FOETAL EXPOSURE DURING PREGNANCY
     Dosage: UNK
     Route: 064
  3. TOUJEO [Suspect]
     Active Substance: INSULIN GLARGINE
     Indication: FOETAL EXPOSURE DURING PREGNANCY
     Dosage: UNK
     Route: 064
  4. LEXPEC 0.5MG/ML ORAL SOLUTION PL00427/0034 [Suspect]
     Active Substance: FOLIC ACID
     Indication: FOETAL EXPOSURE DURING PREGNANCY
     Dosage: UNK
     Route: 064
     Dates: start: 20180615, end: 2018
  5. TINZAPARIN [Suspect]
     Active Substance: TINZAPARIN
     Indication: FOETAL EXPOSURE DURING PREGNANCY
     Dosage: 4500 IU
     Route: 064
  6. RENNIE /01739201/ [Suspect]
     Active Substance: MAGNESIUM CARBONATE
     Indication: FOETAL EXPOSURE DURING PREGNANCY
     Dosage: UNK
     Route: 064
  7. COCODAMOL [Suspect]
     Active Substance: ACETAMINOPHEN\CODEINE PHOSPHATE
     Indication: FOETAL EXPOSURE DURING PREGNANCY
     Dosage: UNK
     Route: 064
  8. ASPIRIN. [Suspect]
     Active Substance: ASPIRIN
     Indication: FOETAL EXPOSURE DURING PREGNANCY
     Dosage: 150 MG, QD
     Route: 064
  9. FLUCLOXACILLIN [Suspect]
     Active Substance: FLUCLOXACILLIN
     Indication: FOETAL EXPOSURE DURING PREGNANCY
     Dosage: 2000 MG, QD
     Route: 064
     Dates: start: 20180619, end: 20180626
  10. HYOSCINE BUTYLBROMIDE [Suspect]
     Active Substance: BUTYLSCOPOLAMINE
     Indication: FOETAL EXPOSURE DURING PREGNANCY
     Dosage: UNK
     Route: 064
     Dates: start: 20181213, end: 20181223

REACTIONS (7)
  - Foetal exposure during delivery [Unknown]
  - Congenital bladder anomaly [Not Recovered/Not Resolved]
  - Genitalia external ambiguous [Not Recovered/Not Resolved]
  - Maternal drugs affecting foetus [None]
  - Neonatal respiratory depression [Unknown]
  - Caesarean section [None]
  - Foetal hypokinesia [Unknown]

NARRATIVE: CASE EVENT DATE: 20181229
